FAERS Safety Report 5285669-4 (Version None)
Quarter: 2007Q1

REPORT INFORMATION
  Report Type: 
  Country: None (occurrence: None)
  Receive Date: 20070126
  Receipt Date: 20061212
  Transmission Date: 20070707
  Serious: No
  Sender: FDA-Public Use
  Company Number: 012739

PATIENT
  Age: 43 Year
  Sex: Female

DRUGS (4)
  1. PRIALT [Suspect]
     Indication: COMPLEX REGIONAL PAIN SYNDROME
     Dosage: SEE IMAGE
     Route: 037
     Dates: start: 20060901, end: 20060101
  2. PRIALT [Suspect]
     Indication: COMPLEX REGIONAL PAIN SYNDROME
     Dosage: SEE IMAGE
     Route: 037
     Dates: start: 20060101
  3. LYRICA [Concomitant]
  4. ROXICODONE [Concomitant]

REACTIONS (4)
  - CONFUSIONAL STATE [None]
  - DIARRHOEA [None]
  - HEADACHE [None]
  - JOINT SWELLING [None]
